FAERS Safety Report 16344370 (Version 1)
Quarter: 2019Q2

REPORT INFORMATION
  Report Type: Spontaneous
  Country: BR (occurrence: BR)
  Receive Date: 20190522
  Receipt Date: 20190522
  Transmission Date: 20190711
  Serious: Yes (Other)
  Sender: FDA-Public Use
  Company Number: BR-PFIZER INC-2019180771

PATIENT
  Age: 58 Year
  Sex: Female
  Weight: 73 kg

DRUGS (8)
  1. DIPYRONE [Concomitant]
     Active Substance: DIPYRONE
     Indication: BACK PAIN
     Dosage: UNK
  2. DIPYRONE [Concomitant]
     Active Substance: DIPYRONE
     Indication: HEADACHE
  3. TIBOLONE [Concomitant]
     Active Substance: TIBOLONE
     Indication: MENOPAUSE
     Dosage: 2.5 MG, DAILY NIGHTLY
  4. AMLODIPINE BESILATE [Concomitant]
     Active Substance: AMLODIPINE BESYLATE
     Indication: HYPERTENSION
     Dosage: UNK
  5. CHAMPIX [Suspect]
     Active Substance: VARENICLINE TARTRATE
     Indication: SMOKING CESSATION THERAPY
     Dosage: 0.5 MG, 1X/DAY
     Dates: start: 20190425, end: 20190427
  6. CHAMPIX [Suspect]
     Active Substance: VARENICLINE TARTRATE
     Dosage: 0.5 MG, 2X/DAY (MORNING AND NIGHT)
     Dates: start: 20190428, end: 20190501
  7. CHAMPIX [Suspect]
     Active Substance: VARENICLINE TARTRATE
     Dosage: 1 MG, 2X/DAY (MORNING AND NIGHT)
     Dates: start: 20190502
  8. FUROSEMIDE. [Concomitant]
     Active Substance: FUROSEMIDE
     Indication: HYPERTENSION
     Dosage: UNK

REACTIONS (4)
  - Nausea [Recovered/Resolved]
  - Pneumonia [Unknown]
  - Pulmonary calcification [Unknown]
  - Product label confusion [Recovered/Resolved]

NARRATIVE: CASE EVENT DATE: 20190425
